FAERS Safety Report 9151390 (Version 2)
Quarter: 2013Q1

REPORT INFORMATION
  Report Type: Report from Study
  Country: US (occurrence: US)
  Receive Date: 20130308
  Receipt Date: 20130312
  Transmission Date: 20140127
  Serious: Yes (Hospitalization)
  Sender: FDA-Public Use
  Company Number: US-VERTEX PHARMACEUTICALS INC.-2013-003080

PATIENT
  Age: 61 Year
  Sex: Male
  Weight: 84.7 kg

DRUGS (10)
  1. VX-950 (TELAPREVIR) [Suspect]
     Indication: HEPATITIS C
     Dosage: 1125 MG, UNK
     Route: 048
     Dates: start: 20130128
  2. Z-PEGYLATED INTERFERON-2A [Suspect]
     Indication: HEPATITIS C
     Dosage: 180 UNK, UNK
     Route: 058
     Dates: start: 20130128
  3. Z-RIBAVIRIN [Suspect]
     Indication: HEPATITIS C
     Dosage: 200 MG, BID
     Route: 048
     Dates: start: 20130128
  4. PREVACID [Concomitant]
     Indication: GASTROOESOPHAGEAL REFLUX DISEASE
     Dosage: 20 MG, QD
     Dates: start: 2006
  5. METOPROLOL [Concomitant]
     Indication: HYPERTENSION
     Dosage: 25 MG, UNK
     Dates: start: 1993
  6. MYFORTIC [Concomitant]
     Dosage: 720MG AM AND 360 MG QPM
     Dates: start: 2010
  7. MULTIVITAMIN [Concomitant]
     Dosage: 1 TABLET, QD
     Dates: start: 2008
  8. CALCIUM D [Concomitant]
     Dosage: 600 MG, UNK
     Dates: start: 2008
  9. OMEGA 3 FISH OIL [Concomitant]
     Dosage: 1 TABLET, BID
     Dates: start: 2008
  10. PHENERGAN [Concomitant]
     Dosage: 25 MG, Q6HRS, PRN
     Dates: start: 20130219

REACTIONS (1)
  - Syncope [Recovered/Resolved]
